FAERS Safety Report 9052684 (Version 1)
Quarter: 2013Q1

REPORT INFORMATION
  Report Type: Spontaneous
  Country: JP (occurrence: JP)
  Receive Date: 20130207
  Receipt Date: 20130207
  Transmission Date: 20140127
  Serious: Yes (Hospitalization)
  Sender: FDA-Public Use
  Company Number: JP-NOVOPROD-370335

PATIENT
  Age: 60 Year
  Sex: Female

DRUGS (10)
  1. SUREPOST [Suspect]
     Indication: TYPE 2 DIABETES MELLITUS
     Dosage: 0.75 MG, QD
     Route: 048
     Dates: start: 20120107, end: 20120216
  2. ORGADRONE [Concomitant]
  3. XYLOCAINE                          /00033401/ [Concomitant]
  4. ARTZ DISPO [Concomitant]
  5. GLACTIV [Concomitant]
  6. ALOSENN                            /00476901/ [Concomitant]
  7. PURSENNID /00142207/ [Concomitant]
  8. KINEDAK [Concomitant]
  9. GLUBES [Concomitant]
  10. ACTOS [Concomitant]

REACTIONS (1)
  - Diabetic coma [Recovering/Resolving]
